FAERS Safety Report 23247996 (Version 2)
Quarter: 2023Q4

REPORT INFORMATION
  Report Type: Spontaneous
  Country: BE (occurrence: BE)
  Receive Date: 20231130
  Receipt Date: 20231212
  Transmission Date: 20240110
  Serious: Yes (Other)
  Sender: FDA-Public Use
  Company Number: BE-BAUSCHBL-2023BNL012005

PATIENT
  Age: 20 Year
  Sex: Female

DRUGS (21)
  1. GANCICLOVIR [Suspect]
     Active Substance: GANCICLOVIR
     Indication: Cytomegalovirus infection reactivation
     Dosage: DAY 35-69
     Route: 065
     Dates: start: 2021, end: 2021
  2. GANCICLOVIR [Suspect]
     Active Substance: GANCICLOVIR
     Dosage: DAY 73-127
     Route: 065
     Dates: start: 2021, end: 2021
  3. CYCLOSPORINE [Concomitant]
     Active Substance: CYCLOSPORINE
     Indication: Haemophagocytic lymphohistiocytosis
     Dosage: DAY 17
     Route: 065
     Dates: start: 2021, end: 2021
  4. CYCLOSPORINE [Concomitant]
     Active Substance: CYCLOSPORINE
     Dosage: TAPERING
     Route: 065
     Dates: start: 2021, end: 2021
  5. ETOPOSIDE [Concomitant]
     Active Substance: ETOPOSIDE
     Indication: Haemophagocytic lymphohistiocytosis
     Dosage: TWICE WEEKLY DURING THE FIRST TWO WEEKS
     Route: 065
     Dates: start: 2021, end: 2021
  6. ETOPOSIDE [Concomitant]
     Active Substance: ETOPOSIDE
     Dosage: ONCE WEEKLY FOR THE 6 FOLLOWING WEEKS
     Route: 065
     Dates: start: 2021, end: 2021
  7. ETOPOSIDE [Concomitant]
     Active Substance: ETOPOSIDE
     Dosage: 8 ADMINISTRATIONS
     Dates: start: 2021, end: 2021
  8. ETOPOSIDE [Concomitant]
     Active Substance: ETOPOSIDE
     Dosage: (DAY 135)
     Dates: start: 2021, end: 2021
  9. DEXAMETHASONE [Concomitant]
     Active Substance: DEXAMETHASONE
     Indication: Haemophagocytic lymphohistiocytosis
     Dates: start: 2021
  10. DEXAMETHASONE [Concomitant]
     Active Substance: DEXAMETHASONE
     Dosage: TAPERING
     Dates: start: 2021
  11. DEXAMETHASONE [Concomitant]
     Active Substance: DEXAMETHASONE
     Dosage: INCREASING
     Dates: start: 2021
  12. DEXAMETHASONE [Concomitant]
     Active Substance: DEXAMETHASONE
     Dosage: TAPERING
     Dates: start: 2021, end: 2021
  13. METHYLPREDNISOLONE [Concomitant]
     Active Substance: METHYLPREDNISOLONE
     Indication: Still^s disease
     Dates: start: 2019
  14. METHYLPREDNISOLONE [Concomitant]
     Active Substance: METHYLPREDNISOLONE
     Indication: Meningitis aseptic
     Dates: start: 2020
  15. METHYLPREDNISOLONE [Concomitant]
     Active Substance: METHYLPREDNISOLONE
     Indication: Haemophagocytic lymphohistiocytosis
     Dosage: DAY 1
     Dates: start: 2021
  16. METHYLPREDNISOLONE [Concomitant]
     Active Substance: METHYLPREDNISOLONE
     Dosage: DOSING WAS INCREASED SIGNIFICANTLY, WITH TAPERING SCHEDULE AFTERWARDS.
     Route: 042
     Dates: start: 2021
  17. METHYLPREDNISOLONE [Concomitant]
     Active Substance: METHYLPREDNISOLONE
     Dosage: HIGH-DOSE SOLUBLE STARTED ON DAY 17
     Dates: start: 2021, end: 2021
  18. EPOPROSTENOL [Concomitant]
     Active Substance: EPOPROSTENOL
     Indication: Pulmonary hypertension
     Dosage: (DAY 88)
     Dates: start: 2021
  19. MACITENTAN [Concomitant]
     Active Substance: MACITENTAN
     Indication: Pulmonary hypertension
     Dosage: (DAY 88)
     Dates: start: 2021
  20. TADALAFIL [Concomitant]
     Active Substance: TADALAFIL
     Indication: Pulmonary hypertension
     Dosage: DAY 114
     Dates: start: 2021
  21. TOFACITINIB [Concomitant]
     Active Substance: TOFACITINIB
     Indication: Haemophagocytic lymphohistiocytosis
     Dosage: (DAY 94)
     Dates: start: 2021, end: 2021

REACTIONS (1)
  - Drug resistance [Unknown]
